FAERS Safety Report 9821116 (Version 1)
Quarter: 2013Q4

REPORT INFORMATION
  Report Type: Spontaneous
  Country: US (occurrence: None)
  Receive Date: 20131025
  Receipt Date: 20131025
  Transmission Date: 20140711
  Serious: Yes (Other)
  Sender: FDA-Public Use
  Company Number: AP356-00046-SPO-US

PATIENT
  Age: 56 Year
  Sex: Male

DRUGS (3)
  1. BELVIQ [Suspect]
     Route: 048
     Dates: start: 201307, end: 20130805
  2. DIOVAN (VALSARTAN) [Concomitant]
  3. SIMVASTATIN [Concomitant]

REACTIONS (1)
  - Heart rate increased [None]
